FAERS Safety Report 9419154 (Version 1)
Quarter: 2013Q3

REPORT INFORMATION
  Report Type: Spontaneous
  Country: BE (occurrence: BE)
  Receive Date: 20130725
  Receipt Date: 20130725
  Transmission Date: 20140515
  Serious: Yes (Life-Threatening, Hospitalization, Other)
  Sender: FDA-Public Use
  Company Number: BE-ELI_LILLY_AND_COMPANY-BE201307006059

PATIENT
  Age: 72 Year
  Sex: Female

DRUGS (10)
  1. DULOXETINE HYDROCHLORIDE [Suspect]
     Indication: NEURALGIA
     Dosage: 60 MG, QD
  2. TILIDINE [Interacting]
  3. NALOXONE [Interacting]
  4. VERAPAMIL [Interacting]
  5. ACETAMINOPHEN [Concomitant]
     Dosage: 4 G, QD
  6. INSULIN [Concomitant]
  7. METFORMIN [Concomitant]
  8. MONTELUKAST [Concomitant]
  9. PANTOPRAZOLE [Concomitant]
  10. ENOXAPARIN [Concomitant]

REACTIONS (9)
  - Hyperthermia [Recovered/Resolved]
  - Respiratory failure [Recovered/Resolved]
  - Rhabdomyolysis [Recovered/Resolved]
  - Loss of consciousness [Recovered/Resolved]
  - Coma [Recovered/Resolved]
  - Fracture [Unknown]
  - Drug interaction [Recovered/Resolved]
  - Renal impairment [Unknown]
  - Myoclonus [Unknown]
